FAERS Safety Report 13559690 (Version 1)
Quarter: 2017Q2

REPORT INFORMATION
  Report Type: Other
  Country: DE (occurrence: DE)
  Receive Date: 20170518
  Receipt Date: 20170518
  Transmission Date: 20170830
  Serious: Yes (Hospitalization)
  Sender: FDA-Public Use
  Company Number: DE-LUPIN PHARMACEUTICALS INC.-E2B_00006805

PATIENT
  Age: 47 Year
  Sex: Female
  Weight: 67 kg

DRUGS (14)
  1. QUETIAPINE. [Suspect]
     Active Substance: QUETIAPINE
     Dosage: UNK UNK,UNK,
     Route: 048
     Dates: start: 20160303, end: 20160306
  2. QUETIAPINE. [Suspect]
     Active Substance: QUETIAPINE
     Dosage: 500 MG,UNK,UNKNOWN
     Route: 048
     Dates: start: 20160502, end: 20160505
  3. VALPROATE [Suspect]
     Active Substance: VALPROIC ACID
     Indication: PRODUCT USED FOR UNKNOWN INDICATION
     Dosage: 600-1200 MG
     Route: 048
     Dates: start: 20160308, end: 20160318
  4. QUETIAPINE. [Suspect]
     Active Substance: QUETIAPINE
     Dosage: UNK UNK,UNK,
     Route: 048
     Dates: start: 20160303, end: 20160306
  5. QUETIAPINE. [Suspect]
     Active Substance: QUETIAPINE
     Dosage: 200 MG,UNK,UNKNOWN
     Route: 048
     Dates: start: 20160527
  6. QUETIAPINE. [Suspect]
     Active Substance: QUETIAPINE
     Dosage: UNK UNK,UNK,
     Route: 048
     Dates: start: 20160524, end: 20160526
  7. QUETIAPINE. [Suspect]
     Active Substance: QUETIAPINE
     Dosage: UNK UNK,UNK,
     Route: 048
     Dates: start: 20160307, end: 20160307
  8. QUETIAPINE. [Suspect]
     Active Substance: QUETIAPINE
     Indication: PRODUCT USED FOR UNKNOWN INDICATION
     Dosage: 100-450 MG
     Route: 048
     Dates: start: 20160223, end: 20160302
  9. QUETIAPINE. [Suspect]
     Active Substance: QUETIAPINE
     Dosage: 400 MG,UNK,UNKNOWN
     Route: 048
     Dates: start: 20160506, end: 20160523
  10. QUETIAPINE. [Suspect]
     Active Substance: QUETIAPINE
     Dosage: UNK UNK,UNK,
     Route: 048
     Dates: start: 20160308, end: 20160317
  11. RISPERIDONE. [Suspect]
     Active Substance: RISPERIDONE
     Indication: PRODUCT USED FOR UNKNOWN INDICATION
     Dosage: 2 MG,UNK,UNKNOWN
     Route: 048
     Dates: start: 20160311
  12. QUETIAPINE. [Suspect]
     Active Substance: QUETIAPINE
     Dosage: UNK UNK,UNK,
     Route: 048
     Dates: start: 20160307, end: 20160501
  13. VALPROATE [Suspect]
     Active Substance: VALPROIC ACID
     Dosage: 1500 MG,UNK,UNKNOWN
     Route: 048
     Dates: start: 20160319
  14. QUETIAPINE. [Suspect]
     Active Substance: QUETIAPINE
     Indication: PRODUCT USED FOR UNKNOWN INDICATION
     Dosage: 100-450 MG
     Route: 048
     Dates: start: 20160223, end: 20160302

REACTIONS (1)
  - Weight increased [Not Recovered/Not Resolved]

NARRATIVE: CASE EVENT DATE: 20160314
